FAERS Safety Report 6651663-1 (Version None)
Quarter: 2010Q1

REPORT INFORMATION
  Report Type: 
  Country: None (occurrence: None)
  Receive Date: 20100325
  Receipt Date: 20100319
  Transmission Date: 20100710
  Serious: Yes (Hospitalization, Other)
  Sender: FDA-Public Use
  Company Number: US-ROXANE LABORATORIES, INC.-2010-RO-00297RO

PATIENT
  Age: 25 Year
  Sex: Female

DRUGS (6)
  1. METHADONE [Suspect]
     Route: 048
  2. CITALOPRAM HYDROBROMIDE [Suspect]
     Indication: DEPRESSION
  3. TETRAHYDROCANNIBOL [Suspect]
  4. OXYMORPHONE [Suspect]
  5. OXYGEN [Concomitant]
     Indication: OXYGEN SATURATION DECREASED
     Route: 055
  6. NALOXONE [Concomitant]
     Indication: OVERDOSE
     Dosage: 0.4 MG

REACTIONS (7)
  - DEAFNESS NEUROSENSORY [None]
  - DRUG SCREEN POSITIVE [None]
  - LOSS OF CONSCIOUSNESS [None]
  - MENTAL STATUS CHANGES [None]
  - OVERDOSE [None]
  - RESPIRATORY DEPRESSION [None]
  - TACHYCARDIA [None]
